FAERS Safety Report 6232023-4 (Version None)
Quarter: 2009Q2

REPORT INFORMATION
  Report Type: 
  Country: None (occurrence: None)
  Receive Date: 20090616
  Receipt Date: 20090604
  Transmission Date: 20091009
  Serious: Yes (Other)
  Sender: FDA-Public Use
  Company Number: US-PFIZER INC-2007070028

PATIENT
  Sex: Female
  Weight: 76.19 kg

DRUGS (8)
  1. CHANTIX [Suspect]
     Indication: SMOKING CESSATION THERAPY
     Dates: start: 20070101
  2. NEURONTIN [Suspect]
     Indication: PAIN
     Dates: start: 20070601
  3. NAPROSYN [Concomitant]
  4. HYDROCODONE BITARTRATE [Concomitant]
  5. OXYBUTYNIN [Concomitant]
  6. ZOLPIDEM TARTRATE [Concomitant]
  7. ANTIDEPRESSANTS [Concomitant]
  8. VOLTAREN [Concomitant]

REACTIONS (6)
  - ACCIDENT [None]
  - BODY HEIGHT DECREASED [None]
  - CARPAL TUNNEL SYNDROME [None]
  - FEELING ABNORMAL [None]
  - NAUSEA [None]
  - VOMITING [None]
